FAERS Safety Report 8180937-0 (Version None)
Quarter: 2012Q1

REPORT INFORMATION
  Report Type: 
  Country: None (occurrence: None)
  Receive Date: 20120302
  Receipt Date: 20120223
  Transmission Date: 20120608
  Serious: Yes (Hospitalization)
  Sender: FDA-Public Use
  Company Number: FR-UCBSA-032177

PATIENT
  Age: 21 Year
  Sex: Female
  Weight: 111 kg

DRUGS (6)
  1. KEPPRA [Suspect]
     Indication: EPILEPSY
     Dosage: DAILY DOSE: 500 MG
     Route: 048
     Dates: start: 20090101
  2. DEPAKENE [Concomitant]
     Dosage: DAILY DOSE: 1500 MG
     Route: 048
     Dates: start: 20110506
  3. URBANYL [Concomitant]
     Indication: EPILEPSY
     Dosage: 30 MG
     Route: 048
     Dates: start: 20070101, end: 20100101
  4. DEPAKENE [Concomitant]
     Indication: EPILEPSY
     Dosage: DAILY DOSE: 200 MG
     Route: 048
     Dates: start: 20090101, end: 20101115
  5. TEGRETOL [Concomitant]
     Indication: EPILEPSY
     Dosage: DAILY DOSE:600 MG
     Route: 048
     Dates: start: 20090101, end: 20101115
  6. LAMICTAL [Concomitant]
     Indication: EPILEPSY
     Dosage: DAILY DOSE: 1000 MG
     Route: 048
     Dates: start: 20090101

REACTIONS (2)
  - CONVULSION [None]
  - PREGNANCY [None]
